FAERS Safety Report 4874513-2 (Version None)
Quarter: 2006Q1

REPORT INFORMATION
  Report Type: 
  Country: None (occurrence: None)
  Receive Date: 20060106
  Receipt Date: 20051230
  Transmission Date: 20060701
  Serious: Yes (Death, Other)
  Sender: FDA-Public Use
  Company Number: US-BOEHRINGER INGELHEIM PHARMACEUTICALS, INC.-2005-DE-05700GD

PATIENT

DRUGS (4)
  1. PARACETAMOL [Suspect]
  2. BISOLTUSSIN [Suspect]
  3. DIGOXIN [Suspect]
  4. CLONIDINE [Suspect]

REACTIONS (3)
  - HEPATOCELLULAR DAMAGE [None]
  - INJURY [None]
  - MEDICATION ERROR [None]
